FAERS Safety Report 13431266 (Version 1)
Quarter: 2017Q2

REPORT INFORMATION
  Report Type: Spontaneous
  Country: US (occurrence: US)
  Receive Date: 20170412
  Receipt Date: 20170412
  Transmission Date: 20170830
  Serious: No
  Sender: FDA-Public Use
  Company Number: US-BAYER-2017-069986

PATIENT
  Age: 96 Year
  Sex: Female
  Weight: 53.97 kg

DRUGS (2)
  1. TARIVID [Concomitant]
     Active Substance: OFLOXACIN
     Dosage: UNK
  2. MIRALAX [Suspect]
     Active Substance: POLYETHYLENE GLYCOL 3350
     Indication: CONSTIPATION
     Dosage: AS NEEDED DOSE
     Route: 048
     Dates: start: 20170409, end: 20170410

REACTIONS (2)
  - Underdose [Unknown]
  - Product use in unapproved indication [Unknown]

NARRATIVE: CASE EVENT DATE: 20170409
